FAERS Safety Report 6973224-7 (Version None)
Quarter: 2010Q3

REPORT INFORMATION
  Report Type: 
  Country: None (occurrence: None)
  Receive Date: 20100909
  Receipt Date: 20100831
  Transmission Date: 20110219
  Serious: Yes (Other)
  Sender: FDA-Public Use
  Company Number: CO-ROCHE-724285

PATIENT
  Sex: Female

DRUGS (3)
  1. CELLCEPT [Suspect]
     Dosage: FREQUENCY: EVERYDAY
     Route: 048
     Dates: start: 20100623, end: 20100628
  2. PREDNISOLONE [Concomitant]
     Dosage: FREQUENCY: EVERYDAY
     Route: 048
  3. TACROLIMUS [Concomitant]
     Dosage: FREQUENCY: EVERYDAY
     Route: 048

REACTIONS (1)
  - TRANSPLANT REJECTION [None]
